FAERS Safety Report 20292582 (Version 5)
Quarter: 2022Q1

REPORT INFORMATION
  Report Type: Spontaneous
  Country: PL (occurrence: PL)
  Receive Date: 20220104
  Receipt Date: 20220216
  Transmission Date: 20220423
  Serious: Yes (Hospitalization, Other)
  Sender: FDA-Public Use
  Company Number: PL-PFM-2021-12122

PATIENT
  Age: 30 Year
  Sex: Female

DRUGS (26)
  1. PANTOPRAZOLE [Suspect]
     Active Substance: PANTOPRAZOLE
     Indication: Pyoderma gangrenosum
     Dosage: 20 MILLIGRAM, QD
     Route: 065
  2. PANTOPRAZOLE [Suspect]
     Active Substance: PANTOPRAZOLE
     Dosage: UNK
     Route: 065
  3. METHYLPREDNISOLONE [Suspect]
     Active Substance: METHYLPREDNISOLONE
     Dosage: 12 MILLIGRAM, QD
     Route: 065
  4. METHYLPREDNISOLONE [Suspect]
     Active Substance: METHYLPREDNISOLONE
     Dosage: UNK
     Route: 065
  5. DEXAMETHASONE [Suspect]
     Active Substance: DEXAMETHASONE
     Indication: Pyoderma gangrenosum
     Dosage: 12 MILLIGRAM, QD
     Route: 042
  6. DEXAMETHASONE [Suspect]
     Active Substance: DEXAMETHASONE
     Dosage: UNK
     Route: 042
  7. DEXAMETHASONE [Suspect]
     Active Substance: DEXAMETHASONE
     Dosage: UNK
     Route: 042
  8. DEXAMETHASONE [Suspect]
     Active Substance: DEXAMETHASONE
     Dosage: UNK
     Route: 065
  9. CLOBETASOL PROPIONATE [Suspect]
     Active Substance: CLOBETASOL PROPIONATE
     Indication: Pyoderma gangrenosum
     Dosage: UNK
     Route: 061
  10. CLOBETASOL PROPIONATE [Suspect]
     Active Substance: CLOBETASOL PROPIONATE
     Dosage: UNK
     Route: 061
  11. CEFTRIAXONE [Suspect]
     Active Substance: CEFTRIAXONE
     Indication: Pyoderma gangrenosum
     Dosage: 2 GRAM, QD
     Route: 065
  12. CEFTRIAXONE [Suspect]
     Active Substance: CEFTRIAXONE
     Dosage: UNK
     Route: 065
  13. SODIUM CHLORIDE [Suspect]
     Active Substance: SODIUM CHLORIDE
     Indication: Pyoderma gangrenosum
     Dosage: UNK
     Route: 061
  14. MUPIROCIN [Suspect]
     Active Substance: MUPIROCIN
     Indication: Pyoderma gangrenosum
     Dosage: UNK
     Route: 061
  15. MUPIROCIN [Suspect]
     Active Substance: MUPIROCIN
     Dosage: UNK
     Route: 065
  16. NADROPARIN [Suspect]
     Active Substance: NADROPARIN
     Indication: Coagulopathy
     Dosage: 5700 INTERNATIONAL UNIT, QD
     Route: 065
  17. NADROPARIN [Suspect]
     Active Substance: NADROPARIN
     Indication: Pyoderma gangrenosum
     Dosage: UNK
     Route: 065
  18. CYCLOSPORINE [Suspect]
     Active Substance: CYCLOSPORINE
     Indication: Pyoderma gangrenosum
     Dosage: 4 MILLIGRAM/KILOGRAM, QD
     Route: 065
  19. CYCLOSPORINE [Suspect]
     Active Substance: CYCLOSPORINE
     Dosage: 3 MILLIGRAM/KILOGRAM, QD
     Route: 065
  20. CYCLOSPORINE [Suspect]
     Active Substance: CYCLOSPORINE
     Dosage: UNK
     Route: 065
  21. ETHAMSYLATE [Suspect]
     Active Substance: ETHAMSYLATE
     Indication: Pyoderma gangrenosum
     Dosage: UNK
     Route: 065
  22. ETHAMSYLATE [Suspect]
     Active Substance: ETHAMSYLATE
     Dosage: UNK
     Route: 065
  23. SULFAMETHOXAZOLE\TRIMETHOPRIM [Suspect]
     Active Substance: SULFAMETHOXAZOLE\TRIMETHOPRIM
     Indication: Pyoderma gangrenosum
     Dosage: UNK
     Route: 065
  24. SULFAMETHOXAZOLE\TRIMETHOPRIM [Suspect]
     Active Substance: SULFAMETHOXAZOLE\TRIMETHOPRIM
     Dosage: UNK
     Route: 065
  25. ACYCLOVIR [Suspect]
     Active Substance: ACYCLOVIR
     Indication: Pyoderma gangrenosum
     Dosage: UNK
     Route: 065
  26. MESALAMINE [Concomitant]
     Active Substance: MESALAMINE
     Indication: Colitis ulcerative
     Dosage: UNK
     Route: 065

REACTIONS (3)
  - Drug ineffective [Recovering/Resolving]
  - Colitis ulcerative [Unknown]
  - Off label use [Unknown]
